FAERS Safety Report 16218407 (Version 6)
Quarter: 2020Q2

REPORT INFORMATION
  Report Type: Spontaneous
  Country: US (occurrence: US)
  Receive Date: 20190419
  Receipt Date: 20200630
  Transmission Date: 20200713
  Serious: Yes (Other)
  Sender: FDA-Public Use
  Company Number: US-PFIZER INC-2019167026

PATIENT
  Age: 61 Year
  Sex: Female

DRUGS (3)
  1. IBRANCE [Suspect]
     Active Substance: PALBOCICLIB
     Dosage: 100 MG, CYCLIC (EVERYDAY 21, 7 DAYS OFF)/1 CAP ONCE A DAY X 21D THEN 7D OFF
     Route: 048
  2. IBRANCE [Suspect]
     Active Substance: PALBOCICLIB
     Dosage: 125 MG, CYCLIC (1 CAP ONCE A DAY X21D THEN 7D OFF)/[DAILY FOR 21 DAYS THEN TAKE 7 DAYS OFF]
     Route: 048
  3. IBRANCE [Suspect]
     Active Substance: PALBOCICLIB
     Dosage: 75 MG, CYCLIC (1 CAPSULE TAKE EVERY DAY FOR 21 DAYS, THEN 7 DAYS OFF)
     Route: 048

REACTIONS (6)
  - Diabetes mellitus [Unknown]
  - White blood cell count decreased [Unknown]
  - Renal failure [Unknown]
  - Blood count abnormal [Unknown]
  - Red blood cell count decreased [Unknown]
  - Blood creatinine increased [Unknown]
